FAERS Safety Report 6016680-3 (Version None)
Quarter: 2008Q4

REPORT INFORMATION
  Report Type: 
  Country: None (occurrence: None)
  Receive Date: 20081218
  Receipt Date: 20081212
  Transmission Date: 20090506
  Serious: Yes (Other)
  Sender: FDA-Public Use
  Company Number: SPV1-2008-02446

PATIENT
  Age: 54 Year
  Sex: Male

DRUGS (10)
  1. FOSRENOL [Suspect]
  2. OSVAREN (CALCIUMACETATE, MAGNESIUMCARBONATE) [Concomitant]
  3. LYRICA [Concomitant]
  4. SIMVASTATIN [Concomitant]
  5. FERRO-SANOL DUODENAL (FERROUS GLYCINE SULFATE) [Concomitant]
  6. COVERSUM COMBI (INDAPAMIDE, PERINDOPRIL ERBUMINE) [Concomitant]
  7. ALLOPURINOL [Concomitant]
  8. TORSEMIDE [Concomitant]
  9. ZEMPLAR [Concomitant]
  10. AVELOX [Concomitant]

REACTIONS (2)
  - BIOPSY SMALL INTESTINE ABNORMAL [None]
  - DUODENITIS [None]
